FAERS Safety Report 14418939 (Version 1)
Quarter: 2018Q1

REPORT INFORMATION
  Report Type: Spontaneous
  Country: US (occurrence: US)
  Receive Date: 20180122
  Receipt Date: 20180122
  Transmission Date: 20180509
  Serious: Yes (Hospitalization, Other)
  Sender: FDA-Public Use
  Company Number: US-ASTELLAS-2018US002849

PATIENT
  Age: 51 Year
  Sex: Female

DRUGS (6)
  1. ANTITHYMOCYTE IMMUNOGLOBULIN (RABBIT) [Concomitant]
     Active Substance: LAPINE T-LYMPHOCYTE IMMUNE GLOBULIN
     Indication: RENAL TRANSPLANT
     Dosage: UNK UNK, UNKNOWN FREQ.
     Route: 065
  2. TACROLIMUS. [Suspect]
     Active Substance: TACROLIMUS
     Dosage: UNK UNK, UNKNOWN FREQ. (5-10 NG/ML)
     Route: 065
  3. PREDNISONE. [Concomitant]
     Active Substance: PREDNISONE
     Route: 065
  4. MYCOPHENOLATE MOFETIL. [Suspect]
     Active Substance: MYCOPHENOLATE MOFETIL
     Indication: RENAL TRANSPLANT
     Dosage: UNK UNK, UNKNOWN FREQ.
     Route: 048
  5. TACROLIMUS. [Suspect]
     Active Substance: TACROLIMUS
     Indication: RENAL TRANSPLANT
     Dosage: UNK UNK, UNKNOWN FREQ. (10-12 NG/ML)
     Route: 065
  6. PREDNISONE. [Concomitant]
     Active Substance: PREDNISONE
     Indication: RENAL TRANSPLANT
     Route: 065

REACTIONS (10)
  - Pericardial effusion [Recovered/Resolved]
  - Delayed graft function [Recovering/Resolving]
  - Urinary tract infection [Unknown]
  - Hypomagnesaemia [Unknown]
  - Diarrhoea [Unknown]
  - Nausea [Unknown]
  - Abdominal pain [Unknown]
  - Cardiac tamponade [Unknown]
  - Dyspepsia [Unknown]
  - Donor specific antibody present [Unknown]
